FAERS Safety Report 8261340-1 (Version None)
Quarter: 2012Q2

REPORT INFORMATION
  Report Type: 
  Country: None (occurrence: None)
  Receive Date: 20120405
  Receipt Date: 20120403
  Transmission Date: 20120825
  Serious: No
  Sender: FDA-Public Use
  Company Number: US-BAYER-2012-032644

PATIENT
  Age: 80 Year
  Sex: Male

DRUGS (1)
  1. CLIMARA [Suspect]
     Indication: PROSTATE CANCER
     Dosage: 8 DF, OW
     Dates: start: 20080101

REACTIONS (2)
  - RASH [None]
  - NO ADVERSE EVENT [None]
